FAERS Safety Report 6712228-6 (Version None)
Quarter: 2010Q2

REPORT INFORMATION
  Report Type: 
  Country: None (occurrence: None)
  Receive Date: 20100505
  Receipt Date: 20100423
  Transmission Date: 20101027
  Serious: Yes (Other)
  Sender: FDA-Public Use
  Company Number: US-AMGEN-QUU408774

PATIENT

DRUGS (1)
  1. ARANESP [Suspect]
     Indication: DIALYSIS

REACTIONS (2)
  - BLOOD ALBUMIN DECREASED [None]
  - HEPATITIS C [None]
